FAERS Safety Report 8169817-4 (Version None)
Quarter: 2012Q1

REPORT INFORMATION
  Report Type: 
  Country: None (occurrence: None)
  Receive Date: 20120222
  Receipt Date: 20120213
  Transmission Date: 20120608
  Serious: Yes (Hospitalization)
  Sender: FDA-Public Use
  Company Number: AUR-APL-2012-00927

PATIENT
  Age: 33 Year
  Sex: Male
  Weight: 92 kg

DRUGS (5)
  1. MIRTAZAPINE [Suspect]
     Indication: DEPRESSION
     Dosage: 30 MG (30 MG, 1 IN 1 D), ORAL
     Route: 048
     Dates: start: 20120125, end: 20120201
  2. MULTIVITAMIN (VIGRAN) [Concomitant]
  3. OMEPRAZOLE [Concomitant]
  4. ACETAMINOPHEN [Concomitant]
  5. CITALOPRAM HYDROBROMIDE [Concomitant]

REACTIONS (9)
  - TREMOR [None]
  - TACHYCARDIA [None]
  - ALCOHOL WITHDRAWAL SYNDROME [None]
  - NERVOUSNESS [None]
  - JAUNDICE [None]
  - SEROTONIN SYNDROME [None]
  - HYPERTENSION [None]
  - BODY TEMPERATURE INCREASED [None]
  - HEPATITIS [None]
